FAERS Safety Report 5765663-7 (Version None)
Quarter: 2008Q2

REPORT INFORMATION
  Report Type: 
  Country: None (occurrence: None)
  Receive Date: 20080606
  Receipt Date: 20080529
  Transmission Date: 20081010
  Serious: Yes (Hospitalization)
  Sender: FDA-Public Use
  Company Number: 2008S1000166

PATIENT
  Age: 51 Year
  Sex: Female
  Weight: 95.2554 kg

DRUGS (7)
  1. SORIATANE [Suspect]
     Indication: PITYRIASIS RUBRA PILARIS
     Dosage: 25 MG; BID; PO
     Route: 048
     Dates: start: 20060731, end: 20071114
  2. SORIATANE [Suspect]
     Indication: PITYRIASIS RUBRA PILARIS
     Dosage: 25 MG; BID; PO
     Route: 048
     Dates: start: 20071219, end: 20080509
  3. VERSAFOAM [Suspect]
     Indication: PITYRIASIS RUBRA PILARIS
     Dosage: BID; TOP
     Route: 061
     Dates: start: 20080319, end: 20080401
  4. ATARAX [Concomitant]
  5. CLOBETASOL PROPIONATE [Concomitant]
  6. AMLACTIN CREAM [Concomitant]
  7. UMECTA [Concomitant]

REACTIONS (14)
  - ABASIA [None]
  - ARTHRALGIA [None]
  - ARTHRITIS [None]
  - ASTHENIA [None]
  - ATAXIA [None]
  - CONDITION AGGRAVATED [None]
  - CONJUNCTIVITIS [None]
  - JOINT SWELLING [None]
  - MUSCULAR WEAKNESS [None]
  - MYALGIA [None]
  - OFF LABEL USE [None]
  - PYREXIA [None]
  - RASH [None]
  - WHITE BLOOD CELL COUNT INCREASED [None]
